FAERS Safety Report 5538416-2 (Version None)
Quarter: 2007Q4

REPORT INFORMATION
  Report Type: 
  Country: None (occurrence: None)
  Receive Date: 20071205
  Receipt Date: 20071120
  Transmission Date: 20080405
  Serious: Yes (Hospitalization, Other)
  Sender: FDA-Public Use
  Company Number: 2007BI025054

PATIENT
  Sex: Male

DRUGS (1)
  1. AVONEX [Suspect]
     Indication: DRUG USE FOR UNKNOWN INDICATION
     Dosage: 30 UG; QW;
     Dates: start: 20040101

REACTIONS (3)
  - AUTISM [None]
  - PREMATURE BABY [None]
  - TRANSMISSION OF DRUG VIA SEMEN [None]
